FAERS Safety Report 24885834 (Version 3)
Quarter: 2025Q3

REPORT INFORMATION
  Report Type: Spontaneous
  Country: EU (occurrence: EU)
  Receive Date: 20250125
  Receipt Date: 20250803
  Transmission Date: 20251020
  Serious: Yes (Other)
  Sender: ALEXION PHARMACEUTICALS
  Company Number: EU-AstraZeneca-CH-00788451A

PATIENT
  Sex: Female

DRUGS (2)
  1. TEZSPIRE [Suspect]
     Active Substance: TEZEPELUMAB-EKKO
     Dosage: 210 MILLIGRAM, Q4W
     Dates: start: 20250103
  2. TEZSPIRE [Suspect]
     Active Substance: TEZEPELUMAB-EKKO

REACTIONS (9)
  - Dyspnoea [Recovering/Resolving]
  - Cough [Recovering/Resolving]
  - Aphasia [Recovered/Resolved]
  - Arthralgia [Recovering/Resolving]
  - Oxygen saturation decreased [Unknown]
  - Hypersensitivity [Unknown]
  - Palpitations [Unknown]
  - Tremor [Unknown]
  - Night sweats [Unknown]

NARRATIVE: CASE EVENT DATE: 20250105
